FAERS Safety Report 8453976-X (Version None)
Quarter: 2012Q2

REPORT INFORMATION
  Report Type: 
  Country: None (occurrence: None)
  Receive Date: 20120323
  Receipt Date: 20111201
  Transmission Date: 20120825
  Serious: Yes (Hospitalization, Other)
  Sender: FDA-Public Use
  Company Number: 163-21880-11091862

PATIENT
  Age: 85 Year
  Sex: Male

DRUGS (18)
  1. REVLIMID [Suspect]
     Indication: MULTIPLE MYELOMA
     Dosage: 25 MG, 1 IN 1 D, PO; 15 MG, 1 IN 1 D, PO
     Route: 048
     Dates: start: 20110303
  2. REVLIMID [Suspect]
     Indication: MULTIPLE MYELOMA
     Dosage: 25 MG, 1 IN 1 D, PO; 15 MG, 1 IN 1 D, PO
     Route: 048
     Dates: start: 20110601
  3. RESTORIL [Concomitant]
  4. SENOKOT [Concomitant]
  5. LEVAQUIN [Concomitant]
  6. ATENOLOL [Concomitant]
  7. CALCIUM + D (LEKOVIT CA) [Concomitant]
  8. TRAMADOL HCL [Concomitant]
  9. LISINOPRIL [Concomitant]
  10. AMLODIPINE [Concomitant]
  11. MULTIVITAMIN [Concomitant]
  12. VASOLINE (OHTER THERAPEUTIC PRODUCTS) [Concomitant]
  13. ZOMEA (ZOLEDRONIC ACID) [Concomitant]
  14. MILK OF MAGNESIA TAB [Concomitant]
  15. PROTONIX [Concomitant]
  16. ASPIRIN [Concomitant]
  17. MEGACE [Concomitant]
  18. POTASSIUM CHLORIDE [Concomitant]

REACTIONS (5)
  - FATIGUE [None]
  - DEHYDRATION [None]
  - HYPOPHAGIA [None]
  - PANCYTOPENIA [None]
  - INFECTION [None]
